FAERS Safety Report 7083606-3 (Version None)
Quarter: 2010Q4

REPORT INFORMATION
  Report Type: 
  Country: None (occurrence: None)
  Receive Date: 20101104
  Receipt Date: 20101101
  Transmission Date: 20110411
  Serious: Yes (Other)
  Sender: FDA-Public Use
  Company Number: BR-ROCHE-737860

PATIENT
  Sex: Female
  Weight: 55 kg

DRUGS (2)
  1. RIVOTRIL [Suspect]
     Indication: INSOMNIA
     Dosage: ADDITIONAL INDICATION: PANIC DISORDER, ONE TABLET AT NIGHT
     Route: 048
     Dates: start: 20000101
  2. RIVOTRIL [Suspect]
     Dosage: ONE TABLET AT 07:00 PM AND SHE TOOK ONE MORE TABLET AROUND MIDNIGHT (MEDICATION ERROR)
     Route: 048

REACTIONS (4)
  - DRUG INEFFECTIVE [None]
  - GASTROINTESTINAL CARCINOMA [None]
  - HEADACHE [None]
  - MEDICATION ERROR [None]
